FAERS Safety Report 12421745 (Version 5)
Quarter: 2016Q3

REPORT INFORMATION
  Report Type: Report from Study
  Country: US (occurrence: US)
  Receive Date: 20160531
  Receipt Date: 20160719
  Transmission Date: 20161109
  Serious: Yes (Other)
  Sender: FDA-Public Use
  Company Number: US-GILEAD-2016-0212988

PATIENT
  Age: 42 Year
  Sex: Female

DRUGS (1)
  1. LEDIPASVIR/SOFOSBUVIR [Suspect]
     Active Substance: LEDIPASVIR\SOFOSBUVIR
     Indication: CHRONIC HEPATITIS C
     Dosage: 1 DF, QD
     Route: 048
     Dates: start: 20160505

REACTIONS (18)
  - Local swelling [Unknown]
  - Feeling of body temperature change [Unknown]
  - Skin ulcer [Unknown]
  - Emotional disorder [Unknown]
  - Asthenia [Unknown]
  - Fatigue [Unknown]
  - Dyspepsia [Unknown]
  - Pain [Not Recovered/Not Resolved]
  - Hypersensitivity [Unknown]
  - Seizure [Unknown]
  - Depression [Unknown]
  - Headache [Unknown]
  - Lymphadenopathy [Unknown]
  - Back pain [Unknown]
  - Chills [Unknown]
  - Dizziness [Unknown]
  - Anxiety [Unknown]
  - Rash macular [Unknown]

NARRATIVE: CASE EVENT DATE: 20160505
